FAERS Safety Report 6251355-7 (Version None)
Quarter: 2009Q2

REPORT INFORMATION
  Report Type: 
  Country: None (occurrence: None)
  Receive Date: 20090630
  Receipt Date: 20090622
  Transmission Date: 20091009
  Serious: Yes (Hospitalization)
  Sender: FDA-Public Use
  Company Number: A0794343A

PATIENT
  Sex: Female

DRUGS (4)
  1. SERETIDE [Suspect]
     Indication: ASTHMA
     Dosage: 1PUFF TWICE PER DAY
     Route: 055
     Dates: start: 20060101
  2. AEROLIN [Concomitant]
     Dosage: 2PUFF TWICE PER DAY
     Dates: start: 20060101
  3. VERAPAMIL [Concomitant]
     Dosage: 80MG TWICE PER DAY
     Dates: start: 20090318
  4. AMITRIPTYLINE [Concomitant]
     Dosage: 25MG PER DAY
     Dates: start: 20090318

REACTIONS (7)
  - AKINESIA [None]
  - FACIAL PALSY [None]
  - HYPERHIDROSIS [None]
  - HYPERTENSION [None]
  - ISCHAEMIC STROKE [None]
  - MUSCLE SPASMS [None]
  - TREMOR [None]
